FAERS Safety Report 19315542 (Version 1)
Quarter: 2021Q2

REPORT INFORMATION
  Report Type: Spontaneous
  Country: IL (occurrence: IL)
  Receive Date: 20210527
  Receipt Date: 20210527
  Transmission Date: 20210717
  Serious: Yes (Hospitalization)
  Sender: FDA-Public Use
  Company Number: IL-MYLANLABS-2021M1031003

PATIENT
  Age: 54 Year
  Sex: Male

DRUGS (5)
  1. VANCOMYCIN [Suspect]
     Active Substance: VANCOMYCIN
     Indication: CLOSTRIDIUM DIFFICILE INFECTION
     Dosage: UNK
     Route: 048
  2. FLUDARABINE [Suspect]
     Active Substance: FLUDARABINE PHOSPHATE
     Indication: CHEMOTHERAPY
     Dosage: UNK
     Route: 065
  3. LEVOFLOXACIN. [Suspect]
     Active Substance: LEVOFLOXACIN
     Indication: INFECTION PROPHYLAXIS
     Dosage: UNK
     Route: 065
  4. MEROPENEM. [Suspect]
     Active Substance: MEROPENEM
     Indication: ESCHERICHIA INFECTION
     Dosage: UNK
     Route: 065
  5. BUSULFAN. [Suspect]
     Active Substance: BUSULFAN
     Indication: CHEMOTHERAPY
     Dosage: UNK
     Route: 065

REACTIONS (2)
  - Dysbiosis [Unknown]
  - Acute graft versus host disease in intestine [Unknown]
